FAERS Safety Report 23665989 (Version 2)
Quarter: 2024Q4

REPORT INFORMATION
  Report Type: Spontaneous
  Country: US (occurrence: US)
  Receive Date: 20240323
  Receipt Date: 20241122
  Transmission Date: 20250114
  Serious: Yes (Other)
  Sender: TORRENT PHARMA INC.
  Company Number: US-MLMSERVICE-20240307-4871346-7

PATIENT
  Age: 64 Year
  Sex: Male

DRUGS (2)
  1. FLUOXETINE [Suspect]
     Active Substance: FLUOXETINE HYDROCHLORIDE
     Indication: Antidepressant therapy
     Route: 065
  2. TRAZODONE [Suspect]
     Active Substance: TRAZODONE HYDROCHLORIDE
     Indication: Antidepressant therapy
     Dosage: NIGHTLY
     Route: 065

REACTIONS (2)
  - Antidepressant drug level increased [Unknown]
  - Serotonin syndrome [Unknown]
